FAERS Safety Report 23890683 (Version 1)
Quarter: 2024Q2

REPORT INFORMATION
  Report Type: Report from Study
  Country: US (occurrence: US)
  Receive Date: 20240523
  Receipt Date: 20240523
  Transmission Date: 20240715
  Serious: Yes (Hospitalization)
  Sender: FDA-Public Use
  Company Number: US-BAYER-2024A072525

PATIENT
  Age: 66 Year
  Sex: Male

DRUGS (2)
  1. NUBEQA [Suspect]
     Active Substance: DAROLUTAMIDE
     Dosage: UNK
  2. ORGOVYX [Concomitant]
     Active Substance: RELUGOLIX
     Indication: Prostate cancer
     Dosage: 120 MG, QD
     Dates: start: 20230902

REACTIONS (6)
  - Blood test abnormal [Unknown]
  - Illness [Unknown]
  - Dizziness [Unknown]
  - Stress [Unknown]
  - Muscle spasms [Unknown]
  - Abdominal pain upper [Unknown]
